FAERS Safety Report 6611172-2 (Version None)
Quarter: 2010Q1

REPORT INFORMATION
  Report Type: 
  Country: None (occurrence: None)
  Receive Date: 20100303
  Receipt Date: 20100217
  Transmission Date: 20100710
  Serious: Yes (Death)
  Sender: FDA-Public Use
  Company Number: DE-RANBAXY-2010RR-31490

PATIENT
  Age: 62 Year
  Sex: Female

DRUGS (3)
  1. RANITIDINE [Suspect]
  2. CO-TRIMOXAZOLE [Suspect]
  3. PHENYTOIN [Suspect]

REACTIONS (9)
  - BLISTER [None]
  - CIRCULATORY COLLAPSE [None]
  - ERYTHEMA [None]
  - KLEBSIELLA SEPSIS [None]
  - PYREXIA [None]
  - RASH [None]
  - SIMPLE PARTIAL SEIZURES [None]
  - SKIN EROSION [None]
  - TOXIC EPIDERMAL NECROLYSIS [None]
